FAERS Safety Report 25821052 (Version 2)
Quarter: 2025Q3

REPORT INFORMATION
  Report Type: Spontaneous
  Country: US (occurrence: US)
  Receive Date: 20250919
  Receipt Date: 20250923
  Transmission Date: 20251021
  Serious: Yes (Other)
  Sender: ACCORD
  Company Number: US-Accord-505086

PATIENT
  Age: 36 Year
  Sex: Male

DRUGS (5)
  1. PACLITAXEL [Suspect]
     Active Substance: PACLITAXEL
     Indication: Angiosarcoma
     Dosage: (3 WEEKS ON, 1 WEEK OFF) ON DAY 24
  2. CEFTRIAXONE [Concomitant]
     Active Substance: CEFTRIAXONE
     Indication: Haemophilus infection
  3. VANCOMYCIN [Concomitant]
     Active Substance: VANCOMYCIN
     Indication: Evidence based treatment
  4. VANCOMYCIN [Concomitant]
     Active Substance: VANCOMYCIN
     Indication: Endocarditis
  5. PACLITAXEL [Suspect]
     Active Substance: PACLITAXEL
     Indication: Spindle cell sarcoma
     Dosage: (3 WEEKS ON, 1 WEEK OFF) ON DAY 24

REACTIONS (4)
  - Off label use [Unknown]
  - Infusion related reaction [Unknown]
  - Dyspnoea [Unknown]
  - Hypoxia [Unknown]
